FAERS Safety Report 17725851 (Version 4)
Quarter: 2020Q2

REPORT INFORMATION
  Report Type: Report from Study
  Country: US (occurrence: US)
  Receive Date: 20200429
  Receipt Date: 20200523
  Transmission Date: 20200714
  Serious: No
  Sender: FDA-Public Use
  Company Number: NVSC2020US115851

PATIENT
  Sex: Female

DRUGS (4)
  1. ENTRESTO [Suspect]
     Active Substance: SACUBITRIL\VALSARTAN
     Dosage: UNK UNK, BID
     Route: 065
     Dates: end: 20200506
  2. ENTRESTO [Suspect]
     Active Substance: SACUBITRIL\VALSARTAN
     Dosage: 1 DF, BID
     Route: 065
     Dates: start: 20200513, end: 20200521
  3. ENTRESTO [Suspect]
     Active Substance: SACUBITRIL\VALSARTAN
     Indication: CARDIAC FAILURE
     Dosage: 1 DF, BID
     Route: 065
     Dates: start: 201909, end: 20200428
  4. WATER PILLS [Concomitant]
     Active Substance: UNSPECIFIED INGREDIENT
     Indication: PRODUCT USED FOR UNKNOWN INDICATION
     Dosage: UNKNOWN
     Route: 065
     Dates: start: 201909, end: 20200506

REACTIONS (8)
  - Feeling abnormal [Not Recovered/Not Resolved]
  - Emotional disorder [Unknown]
  - Terminal insomnia [Unknown]
  - Laziness [Not Recovered/Not Resolved]
  - Depression [Unknown]
  - Ejection fraction decreased [Unknown]
  - Hypervigilance [Unknown]
  - Hypotension [Not Recovered/Not Resolved]
